FAERS Safety Report 12622802 (Version 1)
Quarter: 2016Q3

REPORT INFORMATION
  Report Type: Spontaneous
  Country: US (occurrence: US)
  Receive Date: 20160804
  Receipt Date: 20160804
  Transmission Date: 20161109
  Serious: Yes (Other)
  Sender: FDA-Public Use
  Company Number: US-JNJFOC-20151107796

PATIENT
  Age: 53 Year
  Sex: Male
  Weight: 83.92 kg

DRUGS (1)
  1. LEVAQUIN [Suspect]
     Active Substance: LEVOFLOXACIN
     Indication: SPLENECTOMY
     Route: 048
     Dates: start: 20070316

REACTIONS (4)
  - Neuropathy peripheral [Recovered/Resolved]
  - Product use issue [Unknown]
  - Off label use [Unknown]
  - Fasciitis [Recovered/Resolved]

NARRATIVE: CASE EVENT DATE: 200703
